FAERS Safety Report 22134107 (Version 1)
Quarter: 2023Q1

REPORT INFORMATION
  Report Type: Spontaneous
  Country: US (occurrence: US)
  Receive Date: 20230324
  Receipt Date: 20230324
  Transmission Date: 20230417
  Serious: Yes (Other)
  Sender: FDA-Public Use
  Company Number: US-ORG100016242-2023000098

PATIENT

DRUGS (12)
  1. EXPAREL [Suspect]
     Active Substance: BUPIVACAINE
     Indication: Nerve block
  2. BUPIVACAINE [Suspect]
     Active Substance: BUPIVACAINE
     Indication: Nerve block
     Dosage: NOT PROVIDED
  3. FENTANYL [Concomitant]
     Active Substance: FENTANYL
     Indication: Anaesthesia procedure
     Dosage: NOT PROVIDED
  4. VERSED [Concomitant]
     Active Substance: MIDAZOLAM HYDROCHLORIDE
     Indication: Anaesthesia procedure
     Dosage: NOT PROVIDED
  5. FAMOTIDINE [Concomitant]
     Active Substance: FAMOTIDINE
     Indication: Procedural nausea
     Dosage: NOT PROVIDED
  6. ONDANSETRON [Concomitant]
     Active Substance: ONDANSETRON
     Indication: Procedural nausea
     Dosage: NOT PROVIDED
  7. DEXAMETHASONE [Concomitant]
     Active Substance: DEXAMETHASONE
     Indication: Procedural nausea
     Dosage: NOT PROVIDED
  8. SCOPOLAMINE [Concomitant]
     Active Substance: SCOPOLAMINE
     Indication: Procedural nausea
     Dosage: NOT PROVIDED
  9. GABAPENTIN [Concomitant]
     Active Substance: GABAPENTIN
     Indication: Procedural pain
     Dosage: NOT PROVIDED
  10. ACETAMINOPHEN [Concomitant]
     Active Substance: ACETAMINOPHEN
     Indication: Procedural pain
     Dosage: NOT PROVIDED
  11. MELOXICAM [Concomitant]
     Active Substance: MELOXICAM
     Indication: Procedural pain
     Dosage: NOT PROVIDED
  12. OXYCODONE [Concomitant]
     Active Substance: OXYCODONE
     Indication: Procedural pain
     Dosage: NOT PROVIDED

REACTIONS (1)
  - Upper limb fracture [Recovered/Resolved]
